FAERS Safety Report 25994272 (Version 4)
Quarter: 2025Q4

REPORT INFORMATION
  Report Type: Report from Study
  Country: CA (occurrence: CA)
  Receive Date: 20251104
  Receipt Date: 20251209
  Transmission Date: 20260117
  Serious: Yes (Other)
  Sender: TAKEDA
  Company Number: CA-TAKEDA-2024TUS121149

PATIENT
  Age: 65 Year
  Sex: Female

DRUGS (5)
  1. VEDOLIZUMAB [Suspect]
     Active Substance: VEDOLIZUMAB
     Indication: Colitis ulcerative
     Dosage: 300 MILLIGRAM
  2. VEDOLIZUMAB [Suspect]
     Active Substance: VEDOLIZUMAB
     Indication: Crohn^s disease
     Dosage: 300 MILLIGRAM
  3. VEDOLIZUMAB [Suspect]
     Active Substance: VEDOLIZUMAB
     Dosage: 300 MILLIGRAM, Q4WEEKS
     Dates: start: 20251105
  4. PANTOPRAZOLE MAGNESIUM [Concomitant]
     Active Substance: PANTOPRAZOLE MAGNESIUM
     Dosage: UNK
  5. MESALAMINE [Concomitant]
     Active Substance: MESALAMINE
     Dosage: 2.4 MILLIGRAM

REACTIONS (13)
  - Large intestinal ulcer [Unknown]
  - Mouth ulceration [Recovered/Resolved]
  - Joint swelling [Unknown]
  - Joint range of motion decreased [Unknown]
  - Off label use [Unknown]
  - Dyspnoea [Unknown]
  - Palpitations [Unknown]
  - Abdominal pain [Unknown]
  - Fatigue [Recovered/Resolved]
  - Nausea [Recovered/Resolved]
  - Sinusitis [Recovered/Resolved]
  - Nasopharyngitis [Unknown]
  - Arthralgia [Unknown]

NARRATIVE: CASE EVENT DATE: 20251105
